FAERS Safety Report 5875387-3 (Version None)
Quarter: 2008Q3

REPORT INFORMATION
  Report Type: 
  Country: None (occurrence: None)
  Receive Date: 20080904
  Receipt Date: 20080820
  Transmission Date: 20090109
  Serious: Yes (Other)
  Sender: FDA-Public Use
  Company Number: 1419181-2008-0015

PATIENT
  Sex: Female
  Weight: 85.7298 kg

DRUGS (1)
  1. CHLORHEXIDINE GLUCONATE [Suspect]
     Indication: ANTIBIOTIC PROPHYLAXIS
     Dosage: 3000MG DAILY TOPICAL
     Route: 061
     Dates: start: 20080627, end: 20080903

REACTIONS (3)
  - BURKHOLDERIA CEPACIA INFECTION [None]
  - PHARMACEUTICAL PRODUCT COMPLAINT [None]
  - SPUTUM CULTURE POSITIVE [None]
